FAERS Safety Report 24428714 (Version 1)
Quarter: 2024Q4

REPORT INFORMATION
  Report Type: Spontaneous
  Country: BR (occurrence: BR)
  Receive Date: 20241011
  Receipt Date: 20241011
  Transmission Date: 20250114
  Serious: Yes (Hospitalization, Other)
  Sender: EMD SERONO INC
  Company Number: BR-Merck Healthcare KGaA-2024052523

PATIENT
  Age: 61 Year
  Sex: Female

DRUGS (2)
  1. GLIFAGE [Suspect]
     Active Substance: METFORMIN HYDROCHLORIDE
     Indication: Type 2 diabetes mellitus
     Dosage: 500MG, 2 TABLETS AFTER LUNCH, 2 TABLETS AFTER DINNER?EXPIRATION: JUN-2027
     Route: 048
     Dates: start: 20240516, end: 20240929
  2. METFORMIN HYDROCHLORIDE [Suspect]
     Active Substance: METFORMIN HYDROCHLORIDE
     Indication: Type 2 diabetes mellitus
     Route: 048

REACTIONS (18)
  - Hypotension [Unknown]
  - Syncope [Unknown]
  - Neck mass [Recovered/Resolved]
  - Disorientation [Unknown]
  - Hypoaesthesia [Unknown]
  - Influenza [Recovered/Resolved]
  - Discouragement [Unknown]
  - Muscular weakness [Unknown]
  - Dysstasia [Unknown]
  - Hunger [Unknown]
  - Postoperative wound infection [Unknown]
  - Diabetes mellitus [Unknown]
  - Somnolence [Not Recovered/Not Resolved]
  - Asthenia [Unknown]
  - Nausea [Unknown]
  - Frequent bowel movements [Unknown]
  - Abdominal discomfort [Unknown]
  - Intentional product misuse [Not Recovered/Not Resolved]

NARRATIVE: CASE EVENT DATE: 20240516
